FAERS Safety Report 9534290 (Version 1)
Quarter: 2013Q3

REPORT INFORMATION
  Report Type: Spontaneous
  Country: JP (occurrence: JP)
  Receive Date: 20130918
  Receipt Date: 20130918
  Transmission Date: 20140515
  Serious: Yes (Hospitalization)
  Sender: FDA-Public Use
  Company Number: JP-GLAXOSMITHKLINE-B0914698A

PATIENT
  Age: 81 Year
  Sex: Male

DRUGS (11)
  1. VOTRIENT 200MG [Suspect]
     Indication: ANGIOSARCOMA
     Dosage: 600MG PER DAY
     Route: 048
     Dates: start: 20130625, end: 20130805
  2. CALONAL [Concomitant]
     Indication: ANALGESIC THERAPY
     Dosage: 300MG THREE TIMES PER DAY
     Route: 048
  3. METHYCOBAL [Concomitant]
     Indication: NEUROPATHY PERIPHERAL
     Dosage: 500MG THREE TIMES PER DAY
     Route: 048
  4. AMARYL [Concomitant]
     Dosage: 1MG PER DAY
     Route: 048
  5. OMEPRAL [Concomitant]
     Dosage: 10MG PER DAY
     Route: 048
  6. JANUVIA [Concomitant]
     Dosage: 50MG PER DAY
     Route: 048
  7. TELMISARTAN + HYDROCHLOROTHIAZIDE [Concomitant]
     Route: 048
  8. HARNAL [Concomitant]
     Dosage: .2MG PER DAY
     Route: 048
  9. MAINTATE [Concomitant]
     Dosage: 1.25MG PER DAY
     Route: 048
  10. UNKNOWN DRUG [Concomitant]
     Route: 065
     Dates: start: 20120524, end: 20130529
  11. DOCETAXEL [Concomitant]
     Dates: start: 20120524, end: 20130529

REACTIONS (3)
  - Pneumothorax [Recovering/Resolving]
  - Pneumonia [Unknown]
  - Dyspnoea exertional [Unknown]
